FAERS Safety Report 8000658-4 (Version None)
Quarter: 2011Q4

REPORT INFORMATION
  Report Type: 
  Country: None (occurrence: None)
  Receive Date: 20111216
  Receipt Date: 20111209
  Transmission Date: 20120403
  Serious: Yes (Hospitalization)
  Sender: FDA-Public Use
  Company Number: 2011SP057872

PATIENT
  Age: 7 Year
  Sex: Female
  Weight: 17.6 kg

DRUGS (4)
  1. ETOPOSIDE [Concomitant]
  2. TEMODAL [Suspect]
     Indication: PINEALOBLASTOMA
     Dosage: 90 MG;QD;PO
     Route: 048
     Dates: start: 20110510, end: 20110514
  3. CARBOPLATIN [Concomitant]
  4. THIOTEPA [Concomitant]

REACTIONS (8)
  - OTITIS MEDIA ACUTE [None]
  - EAR PAIN [None]
  - CONSTIPATION [None]
  - PYREXIA [None]
  - FOOD POISONING [None]
  - OTORRHOEA [None]
  - HEART RATE INCREASED [None]
  - DEPRESSED MOOD [None]
